FAERS Safety Report 9683796 (Version 2)
Quarter: 2013Q4

REPORT INFORMATION
  Report Type: Spontaneous
  Country: US (occurrence: US)
  Receive Date: 20131112
  Receipt Date: 20131112
  Transmission Date: 20140711
  Serious: Yes (Hospitalization)
  Sender: FDA-Public Use
  Company Number: US-B.I. PHARMACEUTICALS,INC./RIDGEFIELD-2013-BI-14240BP

PATIENT
  Sex: Male
  Weight: 70.31 kg

DRUGS (13)
  1. PRADAXA [Suspect]
     Indication: ANTICOAGULANT THERAPY
     Dosage: 300 MG
     Route: 048
     Dates: start: 20110818, end: 20120703
  2. PRADAXA [Suspect]
     Indication: ATRIAL FIBRILLATION
  3. METAMUCIL [Concomitant]
     Route: 048
  4. METFORMIN [Concomitant]
     Dosage: 1000 MG
     Route: 048
  5. DIGOXIN [Concomitant]
     Route: 048
  6. SIMVASTATIN [Concomitant]
     Dosage: 40 MG
     Route: 048
  7. INDOMETHACIN [Concomitant]
     Route: 048
  8. ALLOPURINOL [Concomitant]
     Dosage: 100 MG
     Route: 048
  9. ASPIRIN [Concomitant]
     Dosage: 81 MG
     Route: 048
  10. QUINAPRIL HCL [Concomitant]
     Dosage: 40 MG
     Route: 048
  11. FLOMAX [Concomitant]
     Dosage: 0.4 MG
     Route: 048
  12. FUROSEMIDE [Concomitant]
     Dosage: 20 MG
     Route: 048
  13. METOPROLOL TARTRATE [Concomitant]
     Dosage: 200 MG
     Route: 048

REACTIONS (3)
  - Haematoma [Unknown]
  - Coagulopathy [Unknown]
  - Gastrointestinal haemorrhage [Unknown]
